FAERS Safety Report 25357254 (Version 2)
Quarter: 2025Q3

REPORT INFORMATION
  Report Type: Report from Study
  Country: US (occurrence: US)
  Receive Date: 20250526
  Receipt Date: 20250717
  Transmission Date: 20251021
  Serious: Yes (Other)
  Sender: ABBVIE
  Company Number: US-ABBVIE-6297885

PATIENT
  Age: 75 Year
  Sex: Female
  Weight: 72.574 kg

DRUGS (1)
  1. RINVOQ [Suspect]
     Active Substance: UPADACITINIB
     Indication: Colitis ulcerative
     Dosage: 30 MILLIGRAM
     Route: 048
     Dates: start: 20050209

REACTIONS (9)
  - Sjogren^s syndrome [Unknown]
  - Procedural pain [Recovered/Resolved]
  - Acne [Not Recovered/Not Resolved]
  - Contusion [Recovered/Resolved]
  - Spondylitis [Not Recovered/Not Resolved]
  - Swelling face [Recovered/Resolved]
  - Skin discolouration [Recovered/Resolved]
  - Dental caries [Unknown]
  - Impaired healing [Unknown]

NARRATIVE: CASE EVENT DATE: 20250101
